FAERS Safety Report 8756002 (Version 2)
Quarter: 2012Q4

REPORT INFORMATION
  Report Type: Spontaneous
  Country: US (occurrence: None)
  Receive Date: 20120814
  Receipt Date: 20120831
  Transmission Date: 20130627
  Serious: Yes (Other)
  Sender: FDA-Public Use
  Company Number: DKLU1083739

PATIENT
  Age: 6 Year
  Sex: Female

DRUGS (16)
  1. SABRIL [Suspect]
     Indication: INFANTILE SPASMS
     Route: 048
     Dates: start: 20101123
  2. SABRIL [Suspect]
     Indication: INFANTILE SPASMS
     Route: 048
     Dates: start: 20101123
  3. SABRIL [Suspect]
     Indication: INFANTILE SPASMS
     Route: 048
     Dates: start: 20101123
  4. SABRIL [Suspect]
     Indication: INFANTILE SPASMS
     Dates: start: 20110719
  5. SABRIL [Suspect]
     Indication: INFANTILE SPASMS
     Dosage: AM, Gastroenteral use
     Dates: end: 201112
  6. SABRIL [Suspect]
     Indication: INFANTILE SPASMS
     Dosage: Noon, Gastroenteral use
     Dates: end: 201112
  7. SABRIL [Suspect]
     Indication: INFANTILE SPASMS
     Dosage: Gastroenteral use
     Dates: end: 201112
  8. SABRIL [Suspect]
     Indication: INFANTILE SPASMS
     Dosage: AM, Gastroenteral use
     Dates: start: 201112
  9. SABRIL [Suspect]
     Indication: INFANTILE SPASMS
     Dosage: Noon, Gastroenteral use
     Dates: start: 201112
  10. SABRIL [Suspect]
     Indication: INFANTILE SPASMS
     Dosage: Gastroenteral use
     Dates: start: 201112
  11. LEVOTHYROXINE (LEVOTHYROXINE) [Concomitant]
  12. TOPAMAX (TOPIRAMATE) [Concomitant]
  13. KEPPRA (LEVETIRACETAM) [Concomitant]
  14. CLONAZEPAM (CLONAZEPAM) [Concomitant]
  15. LORATADINE (LORATADINE) [Concomitant]
  16. BOTOX [Concomitant]

REACTIONS (4)
  - Blindness [None]
  - Convulsion [None]
  - Weight increased [None]
  - Grand mal convulsion [None]
